FAERS Safety Report 9664526 (Version 3)
Quarter: 2013Q4

REPORT INFORMATION
  Report Type: Spontaneous
  Country: GB (occurrence: GB)
  Receive Date: 20131101
  Receipt Date: 20131119
  Transmission Date: 20140711
  Serious: Yes (Hospitalization, Disabling, Other)
  Sender: FDA-Public Use
  Company Number: PHFR2013GB003023

PATIENT
  Age: 53 Year
  Sex: Female
  Weight: 69 kg

DRUGS (8)
  1. CLOZARIL [Suspect]
     Indication: SCHIZOPHRENIA
     Dosage: 12.5 MG,
     Route: 048
     Dates: start: 20130307, end: 20130326
  2. DIAZEPAM [Concomitant]
     Dosage: 30 MG, UNK
     Route: 048
  3. TEMAZEPAM [Concomitant]
     Dosage: 20 MG, UNK
     Route: 048
  4. ZOPICLONE [Concomitant]
     Dosage: 3.75 MG, UNK
     Route: 048
  5. SODIUM VALPROATE [Concomitant]
     Dosage: 500 MG, UNK
     Route: 048
  6. RANITIDINE [Concomitant]
     Dosage: 150 MG, UNK
     Route: 048
  7. CYCLIZINE [Concomitant]
     Dosage: 150 MG, UNK
     Route: 048
  8. LANSOPRAZOLE [Concomitant]
     Dosage: 15 MG, UNK
     Route: 048

REACTIONS (9)
  - Urinary tract infection [Unknown]
  - Neuroleptic malignant syndrome [Recovered/Resolved]
  - Blood creatine phosphokinase increased [Recovered/Resolved]
  - Blood pressure abnormal [Unknown]
  - Oesophagitis [Not Recovered/Not Resolved]
  - Tachycardia [Recovered/Resolved]
  - Body temperature increased [Not Recovered/Not Resolved]
  - Hypertension [Not Recovered/Not Resolved]
  - Anaemia [Recovered/Resolved]
